FAERS Safety Report 7675179-9 (Version None)
Quarter: 2011Q3

REPORT INFORMATION
  Report Type: 
  Country: None (occurrence: None)
  Receive Date: 20110810
  Receipt Date: 20110805
  Transmission Date: 20111222
  Serious: Yes (Death, Hospitalization)
  Sender: FDA-Public Use
  Company Number: FR-JNJFOC-20110802436

PATIENT
  Sex: Male

DRUGS (2)
  1. ABIRATERONE [Suspect]
     Indication: PROSTATE CANCER
     Dosage: INITIATED LESS THAN 3 MONTHS
     Route: 048
     Dates: end: 20110802
  2. ABIRATERONE [Suspect]
     Route: 048

REACTIONS (5)
  - PULMONARY OEDEMA [None]
  - CARDIAC FAILURE [None]
  - SPINAL CORD COMPRESSION [None]
  - LUNG DISORDER [None]
  - MYOCARDIAL ISCHAEMIA [None]
